FAERS Safety Report 15677754 (Version 1)
Quarter: 2018Q4

REPORT INFORMATION
  Report Type: Report from Study
  Country: US (occurrence: US)
  Receive Date: 20181130
  Receipt Date: 20181130
  Transmission Date: 20190205
  Serious: Yes (Other)
  Sender: FDA-Public Use
  Company Number: US-TAKEDA-2018TUS033807

PATIENT

DRUGS (1)
  1. PIOGLITAZONE. [Suspect]
     Active Substance: PIOGLITAZONE
     Indication: PRODUCT USED FOR UNKNOWN INDICATION
     Dosage: UNK
     Route: 065

REACTIONS (20)
  - Vomiting [Unknown]
  - Myalgia [Unknown]
  - Alopecia [Unknown]
  - Bone pain [Unknown]
  - Back pain [Unknown]
  - Oedema peripheral [Unknown]
  - Skin hyperpigmentation [Unknown]
  - Dizziness [Unknown]
  - Thirst [Unknown]
  - Disturbance in attention [Unknown]
  - Neuropathy peripheral [Unknown]
  - Hyperglycaemia [Unknown]
  - Lymphopenia [Unknown]
  - Seizure [Unknown]
  - Stomatitis [Unknown]
  - Radiation skin injury [Unknown]
  - Fatigue [Unknown]
  - Localised oedema [Unknown]
  - Herpes zoster [Unknown]
  - Mucosal inflammation [Unknown]
